FAERS Safety Report 16711292 (Version 1)
Quarter: 2019Q3

REPORT INFORMATION
  Report Type: Spontaneous
  Country: US (occurrence: US)
  Receive Date: 20190816
  Receipt Date: 20190816
  Transmission Date: 20191004
  Serious: No
  Sender: FDA-Public Use
  Company Number: US-MAYNE PHARMA-2019MYN000156

PATIENT

DRUGS (2)
  1. REVATIO [Suspect]
     Active Substance: SILDENAFIL CITRATE
     Indication: PULMONARY ARTERIAL HYPERTENSION
     Dosage: 20 MG, TID
     Route: 048
  2. TRIMETHOPRIM. [Suspect]
     Active Substance: TRIMETHOPRIM
     Indication: PRODUCT USED FOR UNKNOWN INDICATION

REACTIONS (2)
  - Dyspnoea exertional [Unknown]
  - Chest discomfort [Unknown]
